FAERS Safety Report 4456688-2 (Version None)
Quarter: 2004Q3

REPORT INFORMATION
  Report Type: 
  Country: None (occurrence: None)
  Receive Date: 20040923
  Receipt Date: 20040916
  Transmission Date: 20050211
  Serious: Yes (Hospitalization)
  Sender: FDA-Public Use
  Company Number: 200419173GDDC

PATIENT
  Age: 88 Year
  Sex: Female

DRUGS (5)
  1. CO-AMILOFRUSE [Suspect]
     Indication: HYPERTENSION
     Dosage: DOSE: 2.5/20
     Route: 048
     Dates: end: 20040906
  2. ASPIRIN [Concomitant]
     Route: 048
  3. IRON [Concomitant]
     Route: 048
  4. METFORMIN HCL [Concomitant]
     Route: 048
  5. DIGOXIN [Concomitant]
     Route: 048

REACTIONS (2)
  - BLOOD SODIUM DECREASED [None]
  - FALL [None]
